FAERS Safety Report 6003547-X (Version None)
Quarter: 2008Q4

REPORT INFORMATION
  Report Type: 
  Country: None (occurrence: None)
  Receive Date: 20081216
  Receipt Date: 20081202
  Transmission Date: 20090506
  Serious: Yes (Other)
  Sender: FDA-Public Use
  Company Number: US-ELI_LILLY_AND_COMPANY-US200812000711

PATIENT
  Sex: Female

DRUGS (9)
  1. FORTEO [Suspect]
     Indication: OSTEOPOROSIS
     Dosage: 20 UG, DAILY (1/D)
     Dates: start: 20060301
  2. LEVOTHYROXINE SODIUM [Concomitant]
  3. PANTOPRAZOLE SODIUM [Concomitant]
  4. VESICARE [Concomitant]
  5. PLAVIX [Concomitant]
  6. AMLODIPINE [Concomitant]
  7. PAROXETINE HCL [Concomitant]
  8. SIMVASTATIN [Concomitant]
  9. VITAMINS NOS [Concomitant]

REACTIONS (1)
  - CEREBROVASCULAR ACCIDENT [None]
